FAERS Safety Report 19184943 (Version 3)
Quarter: 2021Q4

REPORT INFORMATION
  Report Type: Spontaneous
  Country: US (occurrence: US)
  Receive Date: 20210427
  Receipt Date: 20211011
  Transmission Date: 20220303
  Serious: Yes (Hospitalization, Other)
  Sender: FDA-Public Use
  Company Number: US-ELI_LILLY_AND_COMPANY-US202104007654

PATIENT
  Age: 69 Year
  Sex: Male

DRUGS (2)
  1. TALTZ [Suspect]
     Active Substance: IXEKIZUMAB
     Indication: Dermatitis psoriasiform
     Dosage: 160 MG, UNKNOWN
     Route: 065
     Dates: start: 202103, end: 202103
  2. TALTZ [Suspect]
     Active Substance: IXEKIZUMAB
     Indication: Eczema

REACTIONS (4)
  - Burns third degree [Recovering/Resolving]
  - Joint swelling [Recovering/Resolving]
  - Peripheral swelling [Recovering/Resolving]
  - Hypothermia [Recovering/Resolving]

NARRATIVE: CASE EVENT DATE: 20210301
